FAERS Safety Report 25554835 (Version 2)
Quarter: 2025Q3

REPORT INFORMATION
  Report Type: Spontaneous
  Country: US (occurrence: US)
  Receive Date: 20250715
  Receipt Date: 20250728
  Transmission Date: 20251021
  Serious: No
  Sender: EPIC PHARM
  Company Number: US-EPICPHARMA-US-2025EPCSPO00803

PATIENT
  Age: 79 Year
  Sex: Female
  Weight: 62 kg

DRUGS (4)
  1. ETHAMBUTOL HYDROCHLORIDE [Suspect]
     Active Substance: ETHAMBUTOL HYDROCHLORIDE
     Indication: Mycobacterium avium complex infection
     Route: 065
     Dates: start: 20231106
  2. AZITHROMYCIN [Suspect]
     Active Substance: AZITHROMYCIN
     Indication: Mycobacterium avium complex infection
     Route: 048
     Dates: start: 20231106, end: 20240208
  3. AZITHROMYCIN [Suspect]
     Active Substance: AZITHROMYCIN
     Route: 048
     Dates: start: 202403
  4. RIFAMPIN [Suspect]
     Active Substance: RIFAMPIN
     Indication: Mycobacterium avium complex infection
     Route: 048
     Dates: start: 20231106, end: 20240909

REACTIONS (1)
  - Product use in unapproved indication [Unknown]
